FAERS Safety Report 10525937 (Version 2)
Quarter: 2014Q4

REPORT INFORMATION
  Report Type: Spontaneous
  Country: IT (occurrence: IT)
  Receive Date: 20141017
  Receipt Date: 20141017
  Transmission Date: 20150528
  Serious: Yes (Hospitalization)
  Sender: FDA-Public Use
  Company Number: PHHY2014IT073487

PATIENT
  Age: 65 Year
  Sex: Female

DRUGS (1)
  1. TOLEP [Suspect]
     Active Substance: OXCARBAZEPINE
     Indication: EPILEPSY
     Dosage: 900 MG, DAILY
     Route: 048
     Dates: start: 20130401, end: 20140403

REACTIONS (2)
  - Psychomotor hyperactivity [Recovering/Resolving]
  - Medication error [Recovering/Resolving]

NARRATIVE: CASE EVENT DATE: 20140407
